FAERS Safety Report 9538084 (Version 7)
Quarter: 2014Q1

REPORT INFORMATION
  Report Type: Spontaneous
  Country: US (occurrence: US)
  Receive Date: 20130920
  Receipt Date: 20140113
  Transmission Date: 20141002
  Serious: Yes (Death, Other)
  Sender: FDA-Public Use
  Company Number: US-BIOGENIDEC-2013BI086324

PATIENT
  Age: 57 Year
  Sex: Female

DRUGS (1)
  1. TYSABRI [Suspect]
     Indication: MULTIPLE SCLEROSIS
     Route: 042
     Dates: start: 20111103, end: 20130808

REACTIONS (5)
  - Hepatic cirrhosis [Fatal]
  - Hepatic failure [Not Recovered/Not Resolved]
  - Platelet count decreased [Unknown]
  - Fluid retention [Unknown]
  - Alcohol abuse [Unknown]
